FAERS Safety Report 17373941 (Version 2)
Quarter: 2020Q1

REPORT INFORMATION
  Report Type: Spontaneous
  Country: FR (occurrence: FR)
  Receive Date: 20200206
  Receipt Date: 20200220
  Transmission Date: 20200409
  Serious: Yes (Other)
  Sender: FDA-Public Use
  Company Number: FR-BIOGEN-2020BI00833828

PATIENT
  Age: 47 Year
  Sex: Female
  Weight: 53 kg

DRUGS (1)
  1. TYSABRI [Suspect]
     Active Substance: NATALIZUMAB
     Indication: RELAPSING-REMITTING MULTIPLE SCLEROSIS
     Dosage: 300MG/24H
     Route: 041
     Dates: start: 2006

REACTIONS (1)
  - B-cell lymphoma [Recovered/Resolved]

NARRATIVE: CASE EVENT DATE: 20190705
